FAERS Safety Report 8605050-7 (Version None)
Quarter: 2012Q3

REPORT INFORMATION
  Report Type: 
  Country: None (occurrence: None)
  Receive Date: 20120820
  Receipt Date: 20120810
  Transmission Date: 20120928
  Serious: Yes (Hospitalization, Other)
  Sender: FDA-Public Use
  Company Number: US-BAYER-2012-031662

PATIENT
  Age: 27 Year
  Sex: Female
  Weight: 63.492 kg

DRUGS (18)
  1. HYDROCODONE BITARTRATE + ACETAMINOPHEN [Concomitant]
     Dosage: 5-325 TABS
     Route: 048
     Dates: start: 20100831, end: 20101013
  2. METHOTREXATE [Concomitant]
     Dosage: 2.5 MG TABS
     Route: 048
     Dates: start: 20100908
  3. YASMIN [Suspect]
     Indication: ACNE
     Dosage: UNK
     Dates: start: 20030101, end: 20100101
  4. TRAMADOL HCL [Concomitant]
     Indication: PAIN
     Dosage: UNK
     Dates: start: 20040101
  5. TRIAMTERENE [Concomitant]
     Indication: VASCULITIS
     Dosage: UNK
     Dates: start: 20090101
  6. TRIAMTEREN HCT [Concomitant]
     Dosage: 37.5-25 MG CAPS
     Route: 048
     Dates: start: 20100915, end: 20101013
  7. METOPROLOL TARTRATE [Concomitant]
     Dosage: 100 MG TABS
     Route: 048
     Dates: start: 20100829, end: 20101013
  8. LYRICA [Concomitant]
     Indication: FIBROMYALGIA
     Dosage: UNK
     Dates: start: 20040101
  9. LYRICA [Concomitant]
     Dosage: 75 MG CAPS
     Route: 048
     Dates: start: 20100916
  10. TRAMADOL HCL [Concomitant]
     Dosage: 50 MG TABS
     Route: 048
     Dates: start: 20100916, end: 20101016
  11. ALPRAZOLAM [Concomitant]
     Dosage: 1 MG TABS
     Route: 048
     Dates: start: 20100906
  12. METOPROLOL TARTRATE [Concomitant]
     Indication: TACHYCARDIA
     Dosage: UNK
     Dates: start: 19950101
  13. LEUCOVORIN CALCIUM [Concomitant]
     Dosage: 5 MG TABS
     Route: 048
     Dates: start: 20100829
  14. YAZ [Suspect]
     Indication: ACNE
     Dosage: UNK
     Dates: start: 20030101, end: 20100101
  15. TRIAMTERENE [Concomitant]
     Indication: OEDEMA
  16. ATROPINE [Concomitant]
     Route: 030
  17. MOTRIN [Concomitant]
     Indication: INFLAMMATION
     Dosage: UNK
     Dates: start: 20090101
  18. IBUPROFEN [Concomitant]
     Dosage: 600 MG CAPS
     Route: 048
     Dates: start: 20100921

REACTIONS (4)
  - CHOLELITHIASIS [None]
  - GALLBLADDER DISORDER [None]
  - INJURY [None]
  - PAIN [None]
